FAERS Safety Report 9321851 (Version 1)
Quarter: 2013Q2

REPORT INFORMATION
  Report Type: Spontaneous
  Country: FR (occurrence: FR)
  Receive Date: 20130531
  Receipt Date: 20130531
  Transmission Date: 20140414
  Serious: Yes (Life-Threatening, Hospitalization, Other)
  Sender: FDA-Public Use
  Company Number: FR-009507513-1304FRA013980

PATIENT
  Age: 56 Year
  Sex: Female

DRUGS (5)
  1. SUSTIVA [Suspect]
     Indication: HIV INFECTION
     Dosage: 600 MG, QD
     Route: 048
     Dates: start: 20060711
  2. ISENTRESS [Suspect]
     Indication: HIV INFECTION
     Dosage: 800 MG, QD
     Route: 048
     Dates: start: 20080307
  3. CARDENSIEL [Concomitant]
     Dosage: UNK
     Dates: start: 20060606
  4. UVEDOSE [Concomitant]
     Dosage: UNK
     Dates: start: 20070202
  5. LIPANTHYL [Concomitant]

REACTIONS (2)
  - Adenocarcinoma gastric [Not Recovered/Not Resolved]
  - Haematemesis [Unknown]
